FAERS Safety Report 18551465 (Version 2)
Quarter: 2020Q4

REPORT INFORMATION
  Report Type: Spontaneous
  Country: BE (occurrence: BE)
  Receive Date: 20201126
  Receipt Date: 20201208
  Transmission Date: 20210114
  Serious: Yes (Other)
  Sender: FDA-Public Use
  Company Number: NVSC2020BE314944

PATIENT
  Age: 35 Year
  Sex: Male

DRUGS (10)
  1. ACICLOVIR [Suspect]
     Active Substance: ACYCLOVIR
     Indication: ACANTHAMOEBA KERATITIS
     Dosage: UNK
     Route: 048
  2. POLYHEXAMETHYLENE BIGUANIDE HYDROCHLORIDE [Suspect]
     Active Substance: POLIHEXANIDE HYDROCHLORIDE
     Dosage: UNK, SIX TIMES A DAY
     Route: 048
  3. AMPHOTERICIN B. [Suspect]
     Active Substance: AMPHOTERICIN B
     Indication: ACANTHAMOEBA KERATITIS
     Dosage: 6 TIMES A DAY
     Route: 065
  4. DESOMEDINE [Suspect]
     Active Substance: HEXAMIDINE DIISETHIONATE
     Indication: ACANTHAMOEBA KERATITIS
     Dosage: 0.1 %
     Route: 048
  5. CHLORHEXIDINE [Suspect]
     Active Substance: CHLORHEXIDINE
     Indication: ACANTHAMOEBA KERATITIS
     Dosage: UNK
     Route: 065
  6. ATROPINE SULFATE. [Suspect]
     Active Substance: ATROPINE SULFATE
     Indication: ACANTHAMOEBA KERATITIS
     Dosage: UNK, BID
     Route: 065
  7. PROPAMIDINE ISETIONATE [Suspect]
     Active Substance: PROPAMIDINE ISETHIONATE
     Indication: ACANTHAMOEBA KERATITIS
     Dosage: ONCE EVERY HOUR FOR FIRST 24 HRS
     Route: 065
  8. ITRACONAZOLE. [Suspect]
     Active Substance: ITRACONAZOLE
     Indication: ACANTHAMOEBA KERATITIS
     Dosage: 100 MG
     Route: 048
  9. POLYHEXAMETHYLENE BIGUANIDE HYDROCHLORIDE [Suspect]
     Active Substance: POLIHEXANIDE HYDROCHLORIDE
     Indication: ACANTHAMOEBA KERATITIS
     Dosage: UNK, ONCE EVERY HOUR FOR FIRST 24 HRS
     Route: 065
  10. MOXIFLOXACIN. [Suspect]
     Active Substance: MOXIFLOXACIN
     Indication: ACANTHAMOEBA KERATITIS
     Dosage: UNK, SIX TIMES A DAY
     Route: 065

REACTIONS (12)
  - Blood lactate dehydrogenase increased [Unknown]
  - Corneal oedema [Unknown]
  - Pulmonary mass [Unknown]
  - Osteonecrosis [Unknown]
  - Keratic precipitates [Unknown]
  - Muscle atrophy [Unknown]
  - Scleritis [Not Recovered/Not Resolved]
  - Muscular weakness [Unknown]
  - Anterior chamber inflammation [Unknown]
  - Corneal epithelium defect [Unknown]
  - Anaemia [Unknown]
  - Myopathy [Unknown]
